FAERS Safety Report 9742530 (Version 2)
Quarter: 2014Q1

REPORT INFORMATION
  Report Type: Report from Study
  Country: BR (occurrence: BR)
  Receive Date: 20131210
  Receipt Date: 20140307
  Transmission Date: 20141002
  Serious: Yes (Hospitalization, Other)
  Sender: FDA-Public Use
  Company Number: PHHY2013BR144292

PATIENT
  Sex: Female
  Weight: 53 kg

DRUGS (2)
  1. FORASEQ [Suspect]
     Indication: DYSPNOEA
     Dosage: 2 CAPSULES (1 CAPSULE OF EACH TREATMENT), QD
     Route: 055
  2. BEROTEC [Concomitant]
     Indication: DYSPNOEA
     Dosage: 5 DF, QD
     Route: 048

REACTIONS (6)
  - Cardiac disorder [Recovering/Resolving]
  - Blood sodium decreased [Recovered/Resolved]
  - Pneumonia [Recovered/Resolved]
  - Dyspnoea [Recovered/Resolved]
  - Dyspnoea exertional [Unknown]
  - Nocturnal dyspnoea [Unknown]
